FAERS Safety Report 11971782 (Version 1)
Quarter: 2016Q1

REPORT INFORMATION
  Report Type: Spontaneous
  Country: US (occurrence: US)
  Receive Date: 20160128
  Receipt Date: 20160128
  Transmission Date: 20160526
  Serious: No
  Sender: FDA-Public Use
  Company Number: US-BAYER-2016-016584

PATIENT
  Sex: Male
  Weight: 19.5 kg

DRUGS (1)
  1. CLARITIN [Suspect]
     Active Substance: LORATADINE

REACTIONS (3)
  - Psychomotor hyperactivity [None]
  - Energy increased [None]
  - Abnormal behaviour [None]
